FAERS Safety Report 4743964-9 (Version None)
Quarter: 2005Q3

REPORT INFORMATION
  Report Type: 
  Country: None (occurrence: None)
  Receive Date: 20050812
  Receipt Date: 20050805
  Transmission Date: 20060218
  Serious: Yes (Hospitalization)
  Sender: FDA-Public Use
  Company Number: US-ROCHE-413403

PATIENT
  Age: 51 Year
  Sex: Female

DRUGS (5)
  1. PEGASYS [Suspect]
     Indication: HEPATITIS C
     Route: 058
     Dates: start: 20050218
  2. COPEGUS [Suspect]
     Indication: HEPATITIS C
     Route: 048
     Dates: start: 20050218
  3. PROCRIT [Concomitant]
     Route: 058
     Dates: start: 20050315
  4. SYNTHROID [Concomitant]
     Indication: HYPOTHYROIDISM
     Route: 048
  5. MULTIVITAMIN NOS [Concomitant]
     Route: 048

REACTIONS (5)
  - CHOLELITHIASIS [None]
  - CONTUSION [None]
  - INSOMNIA [None]
  - NAUSEA [None]
  - RESPIRATORY TRACT CONGESTION [None]
